FAERS Safety Report 6051670-6 (Version None)
Quarter: 2009Q1

REPORT INFORMATION
  Report Type: 
  Country: None (occurrence: None)
  Receive Date: 20090126
  Receipt Date: 20090120
  Transmission Date: 20090719
  Serious: Yes (Hospitalization)
  Sender: FDA-Public Use
  Company Number: PHHO2007SG08165

PATIENT
  Sex: Female
  Weight: 52 kg

DRUGS (1)
  1. GLEEVEC [Suspect]
     Indication: CHRONIC MYELOID LEUKAEMIA
     Dosage: 400 MG, QD
     Route: 048
     Dates: start: 20061102, end: 20080527

REACTIONS (12)
  - ABDOMINAL PAIN UPPER [None]
  - COUGH [None]
  - DECREASED APPETITE [None]
  - DEHYDRATION [None]
  - DEPRESSED MOOD [None]
  - DEPRESSION [None]
  - DUODENITIS [None]
  - FAECES DISCOLOURED [None]
  - GASTRITIS [None]
  - HAEMATEMESIS [None]
  - LETHARGY [None]
  - VOMITING [None]
